FAERS Safety Report 20923390 (Version 3)
Quarter: 2025Q2

REPORT INFORMATION
  Report Type: Spontaneous
  Country: US (occurrence: US)
  Receive Date: 20220607
  Receipt Date: 20250602
  Transmission Date: 20250717
  Serious: Yes (Other)
  Sender: AUROBINDO
  Company Number: US-MLMSERVICE-20220518-3565292-1

PATIENT
  Age: 92 Year
  Sex: Male

DRUGS (1)
  1. AMIODARONE HYDROCHLORIDE [Suspect]
     Active Substance: AMIODARONE HYDROCHLORIDE
     Indication: Atrial fibrillation
     Route: 065

REACTIONS (7)
  - Hypertransaminasaemia [Unknown]
  - Hypothyroidism [Unknown]
  - Interstitial lung disease [Not Recovered/Not Resolved]
  - Pulmonary toxicity [Not Recovered/Not Resolved]
  - Respiratory distress [Unknown]
  - Dyspnoea exertional [Unknown]
  - Toxicity to various agents [Not Recovered/Not Resolved]
